FAERS Safety Report 5940771-6 (Version None)
Quarter: 2008Q4

REPORT INFORMATION
  Report Type: 
  Country: None (occurrence: None)
  Receive Date: 20081103
  Receipt Date: 20081103
  Transmission Date: 20090506
  Serious: Yes (Hospitalization)
  Sender: FDA-Public Use
  Company Number: None

PATIENT
  Age: 67 Year
  Sex: Male

DRUGS (1)
  1. ERLOTINIB [Suspect]
     Indication: NON-SMALL CELL LUNG CANCER
     Dosage: 150 MG EVERY DAY PO
     Route: 048
     Dates: start: 20080501, end: 20080512

REACTIONS (2)
  - DIARRHOEA [None]
  - HEPATIC ENZYME INCREASED [None]
